FAERS Safety Report 8809224 (Version 2)
Quarter: 2012Q4

REPORT INFORMATION
  Report Type: 
  Country: SE (occurrence: SE)
  Receive Date: 20120926
  Receipt Date: 20121029
  Transmission Date: 20130627
  Serious: Yes (Other)
  Sender: FDA-Public Use
  Company Number: PHHY2012SE017860

PATIENT
  Age: 24 Year
  Sex: Female

DRUGS (1)
  1. GILENYA [Suspect]
     Indication: RELAPSING-REMITTING MULTIPLE SCLEROSIS
     Dosage: 0.5 mg, daily
     Route: 048
     Dates: start: 20111214, end: 20120226

REACTIONS (5)
  - Abortion spontaneous [Unknown]
  - Infection [Unknown]
  - Pyrexia [Unknown]
  - Breast pain [Unknown]
  - Maternal exposure during pregnancy [Unknown]
